FAERS Safety Report 22328936 (Version 1)
Quarter: 2023Q2

REPORT INFORMATION
  Report Type: Spontaneous
  Country: HK (occurrence: HK)
  Receive Date: 20230517
  Receipt Date: 20230517
  Transmission Date: 20230722
  Serious: Yes (Other)
  Sender: FDA-Public Use
  Company Number: HK-002147023-NVSC2023HK107982

PATIENT

DRUGS (2)
  1. ASCIMINIB [Suspect]
     Active Substance: ASCIMINIB
     Indication: Product used for unknown indication
     Dosage: 200 MG, BID
     Route: 065
  2. IMATINIB [Suspect]
     Active Substance: IMATINIB
     Indication: Product used for unknown indication
     Dosage: UNK
     Route: 065

REACTIONS (8)
  - Intestinal obstruction [Unknown]
  - Thrombocytopenia [Unknown]
  - Rash [Unknown]
  - Malaise [Unknown]
  - Arthralgia [Unknown]
  - Bone pain [Unknown]
  - Pyrexia [Unknown]
  - Lipase increased [Unknown]
